FAERS Safety Report 13910534 (Version 1)
Quarter: 2017Q3

REPORT INFORMATION
  Report Type: Spontaneous
  Country: US (occurrence: US)
  Receive Date: 20170825
  Receipt Date: 20170825
  Transmission Date: 20171127
  Serious: Yes (Death)
  Sender: FDA-Public Use
  Company Number: None

PATIENT
  Age: 30 Year
  Sex: Female
  Weight: 81 kg

DRUGS (5)
  1. VITAMIN D [Concomitant]
     Active Substance: CHOLECALCIFEROL
  2. PRENATAL VITAMINS [Concomitant]
     Active Substance: VITAMINS
  3. ACYCLOVIR 400MG TABS, 400 MG [Suspect]
     Active Substance: ACYCLOVIR
     Indication: EXPOSURE DURING PREGNANCY
     Dosage: ?          QUANTITY:60 TABLET(S);?
     Route: 048
     Dates: start: 20170525, end: 20170526
  4. TYLENOL [Concomitant]
     Active Substance: ACETAMINOPHEN
  5. ACYCLOVIR 400MG TABS, 400 MG [Suspect]
     Active Substance: ACYCLOVIR
     Indication: HERPES VIRUS INFECTION
     Dosage: ?          QUANTITY:60 TABLET(S);?
     Route: 048
     Dates: start: 20170525, end: 20170526

REACTIONS (3)
  - Foetal heart rate abnormal [None]
  - Maternal exposure during pregnancy [None]
  - Maternal drugs affecting foetus [None]

NARRATIVE: CASE EVENT DATE: 20170529
